FAERS Safety Report 4367014-1 (Version None)
Quarter: 2004Q2

REPORT INFORMATION
  Report Type: 
  Country: None (occurrence: None)
  Receive Date: 20040527
  Receipt Date: 20040527
  Transmission Date: 20050107
  Serious: Yes (Hospitalization, Disabling, Other)
  Sender: FDA-Public Use
  Company Number: None

PATIENT
  Age: 39 Year
  Sex: Female
  Weight: 68.0396 kg

DRUGS (3)
  1. CHYMOPAPAIN [Suspect]
     Indication: INTERVERTEBRAL DISC PROTRUSION
     Dates: start: 19830401
  2. RENAGRAFIN [Suspect]
     Dates: start: 19830401
  3. DEPO-MEDROL [Suspect]

REACTIONS (11)
  - ANAESTHETIC COMPLICATION [None]
  - ARACHNOIDITIS [None]
  - BLADDER DISORDER [None]
  - ENDOCRINE DISORDER [None]
  - IATROGENIC INJURY [None]
  - IMMUNE SYSTEM DISORDER [None]
  - INTESTINAL FUNCTIONAL DISORDER [None]
  - MOBILITY DECREASED [None]
  - NERVOUS SYSTEM DISORDER [None]
  - SPINAL DISORDER [None]
  - TEMPERATURE INTOLERANCE [None]
